FAERS Safety Report 6251068-1 (Version None)
Quarter: 2009Q2

REPORT INFORMATION
  Report Type: 
  Country: None (occurrence: None)
  Receive Date: 20090626
  Receipt Date: 20090623
  Transmission Date: 20091009
  Serious: Yes (Death, Hospitalization)
  Sender: FDA-Public Use
  Company Number: 2009SP008210

PATIENT
  Age: 62 Year
  Sex: Male
  Weight: 76 kg

DRUGS (16)
  1. PEG-INTRON [Suspect]
     Indication: HEPATITIS C
     Dosage: 120 MCG; QW; SC
     Route: 058
     Dates: start: 20090203, end: 20090422
  2. RIBAVIRIN [Suspect]
     Indication: HEPATITIS C
     Dosage: 800 MG; QD; PO, 600 MG; QD; PO, 400 MG; QD; PO, 200 MG; QD; PO
     Route: 048
     Dates: start: 20090417, end: 20090418
  3. RIBAVIRIN [Suspect]
     Indication: HEPATITIS C
     Dosage: 800 MG; QD; PO, 600 MG; QD; PO, 400 MG; QD; PO, 200 MG; QD; PO
     Route: 048
     Dates: start: 20090418, end: 20090421
  4. RIBAVIRIN [Suspect]
     Indication: HEPATITIS C
     Dosage: 800 MG; QD; PO, 600 MG; QD; PO, 400 MG; QD; PO, 200 MG; QD; PO
     Route: 048
     Dates: start: 20090203, end: 20090422
  5. RIBAVIRIN [Suspect]
     Indication: HEPATITIS C
     Dosage: 800 MG; QD; PO, 600 MG; QD; PO, 400 MG; QD; PO, 200 MG; QD; PO
     Route: 048
     Dates: start: 20090203, end: 20090425
  6. RIBAVIRIN [Suspect]
     Indication: HEPATITIS C
     Dosage: 800 MG; QD; PO, 600 MG; QD; PO, 400 MG; QD; PO, 200 MG; QD; PO
     Route: 048
     Dates: start: 20090421, end: 20090425
  7. MP-424 (INVESTIGATIONAL DRUG) [Suspect]
     Indication: HEPATITIS C
     Dosage: 2250 MG; QD; PO
     Route: 048
     Dates: start: 20090203, end: 20090417
  8. LOXONIN [Concomitant]
  9. SELBEX [Concomitant]
  10. HARNAL D [Concomitant]
  11. CERNILTON (CERNITIN POLLEN EXTRACT) [Concomitant]
  12. SOLDEM 3A [Concomitant]
  13. PACETCOOL [Concomitant]
  14. TIENAM [Concomitant]
  15. LENDORMIN D [Concomitant]
  16. CRAVIT [Concomitant]

REACTIONS (19)
  - AGGRESSION [None]
  - AGITATION [None]
  - ANOREXIA [None]
  - BLOOD PRESSURE DECREASED [None]
  - CARDIO-RESPIRATORY ARREST [None]
  - CHEST PAIN [None]
  - CONFUSIONAL STATE [None]
  - DELIRIUM [None]
  - DILATATION VENTRICULAR [None]
  - HAEMOGLOBIN DECREASED [None]
  - HYPOXIC ENCEPHALOPATHY [None]
  - MALAISE [None]
  - PERSECUTORY DELUSION [None]
  - PROSTATITIS [None]
  - PULMONARY EMBOLISM [None]
  - PYREXIA [None]
  - RASH [None]
  - VENOUS THROMBOSIS LIMB [None]
  - VISUAL IMPAIRMENT [None]
